FAERS Safety Report 6719821-5 (Version None)
Quarter: 2010Q2

REPORT INFORMATION
  Report Type: 
  Country: None (occurrence: None)
  Receive Date: 20100510
  Receipt Date: 20100510
  Transmission Date: 20101027
  Serious: No
  Sender: FDA-Public Use
  Company Number: None

PATIENT
  Sex: Female
  Weight: 77.1115 kg

DRUGS (2)
  1. PROAIR HFA [Suspect]
     Indication: ASTHMA
     Dosage: 1-2 PUFFS AS NEEDED  INHAL
     Route: 055
     Dates: start: 20081201, end: 20100508
  2. PROAIR HFA [Suspect]
     Indication: HYPERSENSITIVITY
     Dosage: 1-2 PUFFS AS NEEDED  INHAL
     Route: 055
     Dates: start: 20081201, end: 20100508

REACTIONS (2)
  - DRUG EFFECT DECREASED [None]
  - PRODUCT QUALITY ISSUE [None]
